FAERS Safety Report 15647620 (Version 2)
Quarter: 2019Q1

REPORT INFORMATION
  Report Type: Spontaneous
  Country: NO (occurrence: NO)
  Receive Date: 20181122
  Receipt Date: 20190104
  Transmission Date: 20190417
  Serious: Yes (Death, Other)
  Sender: FDA-Public Use
  Company Number: NO-PFIZER INC-2018479948

PATIENT
  Age: 67 Year
  Sex: Female

DRUGS (2)
  1. IBRANCE [Suspect]
     Active Substance: PALBOCICLIB
     Indication: HORMONE REFRACTORY BREAST CANCER
     Dosage: 125 MG, 1X/DAY
     Route: 048
     Dates: start: 20180613, end: 20180628
  2. FASLODEX [Concomitant]
     Active Substance: FULVESTRANT
     Dosage: UNK
     Dates: start: 20180613

REACTIONS (7)
  - Cerebrovascular accident [Fatal]
  - Acute myocardial infarction [Unknown]
  - Pancytopenia [Unknown]
  - Ischaemic cerebral infarction [Unknown]
  - Neoplasm progression [Unknown]
  - Cerebral haemorrhage [Unknown]
  - Splenic infarction [Unknown]
